FAERS Safety Report 17942791 (Version 2)
Quarter: 2022Q3

REPORT INFORMATION
  Report Type: Spontaneous
  Country: JP (occurrence: JP)
  Receive Date: 20200625
  Receipt Date: 20220719
  Transmission Date: 20221026
  Serious: Yes (Life-Threatening, Hospitalization, Other)
  Sender: FDA-Public Use
  Company Number: JP-NOVARTISPH-NVSJ2020JP006110

PATIENT
  Age: 64 Year
  Sex: Male
  Weight: 58.4 kg

DRUGS (6)
  1. METFORMIN HYDROCHLORIDE\VILDAGLIPTIN [Suspect]
     Active Substance: METFORMIN HYDROCHLORIDE\VILDAGLIPTIN
     Indication: Type 2 diabetes mellitus
     Dosage: METFORMIN 250MG/ VILDAGLIPTIN 50MG, BID
     Route: 048
     Dates: end: 20200430
  2. METGLUCO [Suspect]
     Active Substance: METFORMIN HYDROCHLORIDE
     Indication: Type 2 diabetes mellitus
     Dosage: 500 MG
     Route: 048
  3. FEBUXOSTAT [Concomitant]
     Active Substance: FEBUXOSTAT
     Indication: Hyperuricaemia
     Dosage: 20 MG, BID
     Route: 048
     Dates: end: 20200430
  4. PREGABALIN [Concomitant]
     Active Substance: PREGABALIN
     Indication: Neuropathy peripheral
     Dosage: 75 MG, BID
     Route: 048
     Dates: end: 20200430
  5. TRAMADOL HYDROCHLORIDE AND ACETAMINOPHEN [Concomitant]
     Active Substance: ACETAMINOPHEN\TRAMADOL HYDROCHLORIDE
     Indication: Neuropathy peripheral
     Dosage: TRAMADOL HYDROCHLORIDE 37.5MG/ACETAMINOPHEN 650MG, BID
     Route: 048
  6. BROTIZOLAM [Concomitant]
     Active Substance: BROTIZOLAM
     Indication: Product used for unknown indication
     Dosage: 0.25 MG, QD
     Route: 065

REACTIONS (11)
  - Lactic acidosis [Recovered/Resolved]
  - Hypoglycaemia [Recovered/Resolved]
  - Altered state of consciousness [Unknown]
  - Dysarthria [Unknown]
  - Blood pressure decreased [Recovered/Resolved]
  - Diabetic nephropathy [Unknown]
  - Concomitant disease aggravated [Unknown]
  - Liver disorder [Unknown]
  - Decreased appetite [Unknown]
  - Dehydration [Recovered/Resolved]
  - Malnutrition [Unknown]

NARRATIVE: CASE EVENT DATE: 20200501
